FAERS Safety Report 18094616 (Version 1)
Quarter: 2020Q3

REPORT INFORMATION
  Report Type: Spontaneous
  Country: US (occurrence: US)
  Receive Date: 20200731
  Receipt Date: 20200731
  Transmission Date: 20201103
  Serious: No
  Sender: FDA-Public Use
  Company Number: US-AMGEN-USASP2020120543

PATIENT
  Age: 70 Year
  Sex: Female

DRUGS (2)
  1. MVASI [Suspect]
     Active Substance: BEVACIZUMAB-AWWB
     Indication: FALLOPIAN TUBE CANCER
     Dosage: UNK
     Route: 065
  2. MVASI [Suspect]
     Active Substance: BEVACIZUMAB-AWWB
     Dosage: 700 MILLIGRAM
     Route: 065
     Dates: start: 20200630

REACTIONS (2)
  - Wrong technique in product usage process [Unknown]
  - Blood test abnormal [Unknown]

NARRATIVE: CASE EVENT DATE: 2020
